FAERS Safety Report 8313544-7 (Version None)
Quarter: 2012Q2

REPORT INFORMATION
  Report Type: 
  Country: None (occurrence: None)
  Receive Date: 20120426
  Receipt Date: 20120418
  Transmission Date: 20120825
  Serious: Yes (Other)
  Sender: FDA-Public Use
  Company Number: US-JNJFOC-20120408654

PATIENT
  Sex: Female
  Weight: 88.45 kg

DRUGS (3)
  1. TOPROL-XL [Concomitant]
     Indication: CARDIAC FLUTTER
     Route: 048
     Dates: start: 20120401
  2. LISINOPRIL [Concomitant]
     Indication: BLOOD PRESSURE
     Route: 048
  3. XARELTO [Suspect]
     Indication: ATRIAL FIBRILLATION
     Route: 048
     Dates: start: 20120417

REACTIONS (1)
  - VISION BLURRED [None]
